FAERS Safety Report 7499838-6 (Version None)
Quarter: 2011Q2

REPORT INFORMATION
  Report Type: 
  Country: None (occurrence: None)
  Receive Date: 20110524
  Receipt Date: 20110519
  Transmission Date: 20111010
  Serious: Yes (Other)
  Sender: FDA-Public Use
  Company Number: US-ROCHE-778230

PATIENT
  Sex: Male

DRUGS (2)
  1. AMNESTEEM [Suspect]
     Indication: ACNE
     Route: 065
     Dates: start: 20030101
  2. ACCUTANE [Suspect]
     Indication: ACNE
     Route: 065
     Dates: start: 20030101

REACTIONS (2)
  - INFLAMMATORY BOWEL DISEASE [None]
  - ANXIETY [None]
